FAERS Safety Report 9474165 (Version 1)
Quarter: 2013Q3

REPORT INFORMATION
  Report Type: Spontaneous
  Country: DE (occurrence: DE)
  Receive Date: 20130823
  Receipt Date: 20130823
  Transmission Date: 20140515
  Serious: Yes (Other)
  Sender: FDA-Public Use
  Company Number: DE-ASTRAZENECA-2013SE63771

PATIENT
  Age: 31 Year
  Sex: Female
  Weight: 61 kg

DRUGS (5)
  1. BELOC-ZOK [Suspect]
     Indication: HYPERTENSION
     Route: 048
  2. PROPYLTHIOURACIL [Suspect]
     Indication: HYPERTHYROIDISM
     Route: 048
  3. KEIMAX [Concomitant]
     Indication: CYSTITIS
     Route: 048
  4. FOLSAURE [Concomitant]
     Indication: PROPHYLAXIS OF NEURAL TUBE DEFECT
     Route: 048
  5. CELESTAN [Concomitant]
     Route: 042

REACTIONS (2)
  - Exposure during pregnancy [Unknown]
  - Pre-eclampsia [Recovered/Resolved]
